FAERS Safety Report 4635648-2 (Version None)
Quarter: 2005Q2

REPORT INFORMATION
  Report Type: 
  Country: None (occurrence: None)
  Receive Date: 20050413
  Receipt Date: 20050329
  Transmission Date: 20051028
  Serious: Yes (Other)
  Sender: FDA-Public Use
  Company Number: 213295

PATIENT
  Age: 83 Year
  Sex: Female

DRUGS (3)
  1. MABTHERA              (RITUXIMAB) [Suspect]
     Indication: DRUG USE FOR UNKNOWN INDICATION
     Dosage: INTRAVENOUS
     Route: 042
  2. HYDROCORTISONE [Concomitant]
  3. PHENERGAN [Concomitant]

REACTIONS (1)
  - INFUSION RELATED REACTION [None]
